FAERS Safety Report 8176520 (Version 3)
Quarter: 2013Q2

REPORT INFORMATION
  Report Type: Report from Study
  Country: IT (occurrence: IT)
  Receive Date: 20111012
  Receipt Date: 20130513
  Transmission Date: 20140414
  Serious: Yes (Hospitalization, Other)
  Sender: FDA-Public Use
  Company Number: IT-BIOGENIDEC-2011BI038376

PATIENT
  Age: 31 Year
  Sex: Female

DRUGS (2)
  1. TYSABRI [Suspect]
     Indication: RELAPSING-REMITTING MULTIPLE SCLEROSIS
     Route: 042
     Dates: start: 20100730
  2. AMITRIPTILINE [Concomitant]
     Indication: HEADACHE
     Route: 048
     Dates: start: 20110628

REACTIONS (1)
  - Papillary thyroid cancer [Recovered/Resolved with Sequelae]
